FAERS Safety Report 4351253-X (Version None)
Quarter: 2004Q2

REPORT INFORMATION
  Report Type: 
  Country: None (occurrence: None)
  Receive Date: 20040503
  Receipt Date: 20040427
  Transmission Date: 20050107
  Serious: Yes (Other)
  Sender: FDA-Public Use
  Company Number: US-BRISTOL-MYERS SQUIBB COMPANY-12572038

PATIENT
  Age: 62 Year
  Sex: Male
  Weight: 49 kg

DRUGS (4)
  1. ERBITUX [Suspect]
     Indication: COLON CANCER
     Route: 042
  2. COUMADIN [Concomitant]
  3. MS CONTIN [Concomitant]
  4. ARANESP [Concomitant]

REACTIONS (1)
  - EYELID DISORDER [None]
